FAERS Safety Report 20872844 (Version 12)
Quarter: 2023Q1

REPORT INFORMATION
  Report Type: Spontaneous
  Country: JP (occurrence: JP)
  Receive Date: 20220525
  Receipt Date: 20230123
  Transmission Date: 20230418
  Serious: Yes (Hospitalization)
  Sender: FDA-Public Use
  Company Number: JP-JNJFOC-20220549500

PATIENT
  Age: 56 Year
  Sex: Female

DRUGS (10)
  1. UPTRAVI [Suspect]
     Active Substance: SELEXIPAG
     Indication: Pulmonary arterial hypertension
     Route: 048
     Dates: start: 20210401, end: 2021
  2. UPTRAVI [Suspect]
     Active Substance: SELEXIPAG
     Route: 048
     Dates: start: 20220701, end: 2022
  3. UPTRAVI [Suspect]
     Active Substance: SELEXIPAG
     Route: 048
     Dates: start: 2022
  4. TREPROSTINIL [Concomitant]
     Active Substance: TREPROSTINIL
     Indication: Pulmonary arterial hypertension
     Route: 065
  5. TREPROSTINIL [Concomitant]
     Active Substance: TREPROSTINIL
     Route: 065
     Dates: start: 20220401, end: 2022
  6. TREPROSTINIL [Concomitant]
     Active Substance: TREPROSTINIL
     Route: 065
     Dates: start: 20220505, end: 2022
  7. TREPROSTINIL [Concomitant]
     Active Substance: TREPROSTINIL
     Route: 065
     Dates: start: 20220602
  8. SAMSCA [Concomitant]
     Active Substance: TOLVAPTAN
  9. SPIRONOLACTONE [Concomitant]
     Active Substance: SPIRONOLACTONE
  10. COVID-19 VACCINE [Concomitant]
     Indication: Prophylaxis
     Dates: start: 20220301, end: 20220301

REACTIONS (14)
  - Physical deconditioning [Recovering/Resolving]
  - Adverse event [Not Recovered/Not Resolved]
  - Vasculitis [Recovering/Resolving]
  - Weight decreased [Not Recovered/Not Resolved]
  - Brain natriuretic peptide increased [Recovered/Resolved]
  - Dyspnoea [Recovered/Resolved]
  - Pain in jaw [Recovered/Resolved]
  - Hypoaesthesia [Recovered/Resolved]
  - Diarrhoea [Recovered/Resolved]
  - Arthralgia [Not Recovered/Not Resolved]
  - Anaemia [Recovered/Resolved]
  - Blood zinc decreased [Recovering/Resolving]
  - Taste disorder [Recovering/Resolving]
  - Hypotension [Recovering/Resolving]

NARRATIVE: CASE EVENT DATE: 20210901
